FAERS Safety Report 14657498 (Version 2)
Quarter: 2018Q2

REPORT INFORMATION
  Report Type: Spontaneous
  Country: US (occurrence: US)
  Receive Date: 20180320
  Receipt Date: 20180422
  Transmission Date: 20180711
  Serious: Yes (Hospitalization, Other)
  Sender: FDA-Public Use
  Company Number: US-APOTEX-2018AP008441

PATIENT
  Age: 63 Year
  Sex: Male

DRUGS (1)
  1. DICLOFENAC [Suspect]
     Active Substance: DICLOFENAC
     Indication: OSTEOARTHRITIS
     Route: 065

REACTIONS (7)
  - Large intestinal stenosis [Recovering/Resolving]
  - Treatment noncompliance [Unknown]
  - Gastric ulcer [Unknown]
  - Abnormal loss of weight [Unknown]
  - Microcytic anaemia [Unknown]
  - Diverticulum intestinal [Recovering/Resolving]
  - Large intestinal ulcer [Recovering/Resolving]
